FAERS Safety Report 17003766 (Version 1)
Quarter: 2019Q4

REPORT INFORMATION
  Report Type: Spontaneous
  Country: FR (occurrence: FR)
  Receive Date: 20191107
  Receipt Date: 20191107
  Transmission Date: 20200122
  Serious: Yes (Other)
  Sender: FDA-Public Use
  Company Number: FR-AMGEN-FRASP2019180223

PATIENT

DRUGS (1)
  1. XGEVA [Suspect]
     Active Substance: DENOSUMAB
     Indication: BONE GIANT CELL TUMOUR
     Dosage: 120 MILLIGRAM, Q4WK
     Route: 058

REACTIONS (5)
  - Bone giant cell tumour malignant [Unknown]
  - Hypocalcaemia [Unknown]
  - Osteonecrosis of jaw [Unknown]
  - Musculoskeletal pain [Unknown]
  - Therapy non-responder [Unknown]
